FAERS Safety Report 18522779 (Version 3)
Quarter: 2021Q2

REPORT INFORMATION
  Report Type: Report from Study
  Country: AR (occurrence: AR)
  Receive Date: 20201119
  Receipt Date: 20210608
  Transmission Date: 20210717
  Serious: Yes (Other)
  Sender: FDA-Public Use
  Company Number: PHHY2016AR178976

PATIENT
  Age: 68 Year
  Sex: Female

DRUGS (5)
  1. CAPECITABINE. [Suspect]
     Active Substance: CAPECITABINE
     Indication: PRODUCT USED FOR UNKNOWN INDICATION
     Route: 065
  2. AFINITOR [Suspect]
     Active Substance: EVEROLIMUS
     Indication: NEUROENDOCRINE TUMOUR
     Dosage: 10 MG, QD
     Route: 048
     Dates: start: 20201111, end: 20210312
  3. SANDOSTATIN LAR DEPOT [Suspect]
     Active Substance: OCTREOTIDE ACETATE
     Indication: PANCREATIC NEUROENDOCRINE TUMOUR
     Dosage: 30 MG, QMO (EVERY 28 DAYS)
     Route: 065
     Dates: start: 20161212, end: 20210114
  4. SANDOSTATIN LAR DEPOT [Suspect]
     Active Substance: OCTREOTIDE ACETATE
  5. SANDOSTATIN LAR DEPOT [Suspect]
     Active Substance: OCTREOTIDE ACETATE

REACTIONS (19)
  - Malignant neoplasm progression [Unknown]
  - Feeling abnormal [Not Recovered/Not Resolved]
  - Metastases to abdominal cavity [Unknown]
  - Deafness [Unknown]
  - Anxiety [Recovering/Resolving]
  - Taste disorder [Not Recovered/Not Resolved]
  - Asthenia [Not Recovered/Not Resolved]
  - Fatigue [Not Recovered/Not Resolved]
  - Neuroendocrine tumour [Unknown]
  - Memory impairment [Recovering/Resolving]
  - Blood pressure increased [Not Recovered/Not Resolved]
  - Abdominal discomfort [Not Recovered/Not Resolved]
  - Stress [Recovering/Resolving]
  - Headache [Not Recovered/Not Resolved]
  - Chest pain [Recovering/Resolving]
  - Vomiting [Not Recovered/Not Resolved]
  - Blood glucose increased [Unknown]
  - Dizziness [Not Recovered/Not Resolved]
  - Drug ineffective [Unknown]

NARRATIVE: CASE EVENT DATE: 20161212
